FAERS Safety Report 9426276 (Version 1)
Quarter: 2013Q3

REPORT INFORMATION
  Report Type: Spontaneous
  Country: US (occurrence: US)
  Receive Date: 20130730
  Receipt Date: 20130730
  Transmission Date: 20140515
  Serious: No
  Sender: FDA-Public Use
  Company Number: US-JNJFOC-20130500455

PATIENT
  Age: 73 Year
  Sex: Female
  Weight: 90.72 kg

DRUGS (2)
  1. TYLENOL ARTHRITIS PAIN ER [Suspect]
     Route: 048
  2. TYLENOL ARTHRITIS PAIN ER [Suspect]
     Indication: INFLAMMATION
     Route: 048

REACTIONS (2)
  - No adverse event [Unknown]
  - Product expiration date issue [None]
